FAERS Safety Report 5008701-1 (Version None)
Quarter: 2006Q2

REPORT INFORMATION
  Report Type: 
  Country: None (occurrence: None)
  Receive Date: 20060518
  Receipt Date: 20060505
  Transmission Date: 20061013
  Serious: Yes (Hospitalization)
  Sender: FDA-Public Use
  Company Number: 2006060197

PATIENT
  Age: 62 Year
  Sex: Female
  Weight: 58.2 kg

DRUGS (2)
  1. SUTENT [Suspect]
     Indication: GASTROINTESTINAL STROMAL TUMOUR
     Dosage: 1400 MG (50 MG, 1 IN 1 D), ORAL; 1050 MG (37.5 MG, 1 IN 1 D), ORAL
     Route: 048
     Dates: start: 20060202, end: 20060301
  2. SUTENT [Suspect]
     Indication: GASTROINTESTINAL STROMAL TUMOUR
     Dosage: 1400 MG (50 MG, 1 IN 1 D), ORAL; 1050 MG (37.5 MG, 1 IN 1 D), ORAL
     Route: 048
     Dates: start: 20060323, end: 20060419

REACTIONS (4)
  - HEADACHE [None]
  - MUSCULOSKELETAL STIFFNESS [None]
  - SINUSITIS [None]
  - WHITE BLOOD CELL COUNT DECREASED [None]
